FAERS Safety Report 21199830 (Version 1)
Quarter: 2022Q3

REPORT INFORMATION
  Report Type: Spontaneous
  Country: ES (occurrence: ES)
  Receive Date: 20220811
  Receipt Date: 20220811
  Transmission Date: 20221027
  Serious: Yes (Other)
  Sender: FDA-Public Use
  Company Number: ES-TEVA-2022-ES-2063993

PATIENT
  Age: 31 Year
  Sex: Male

DRUGS (2)
  1. WILZIN [Suspect]
     Active Substance: ZINC ACETATE
     Indication: Hepato-lenticular degeneration
     Dosage: 150 MILLIGRAM DAILY;
     Route: 048
     Dates: start: 201704
  2. WILZIN [Suspect]
     Active Substance: ZINC ACETATE
     Dosage: UNK, DOSE REDUCED
     Route: 048

REACTIONS (2)
  - Dysphagia [Unknown]
  - Oropharyngeal pain [Unknown]
